FAERS Safety Report 5043153-7 (Version None)
Quarter: 2006Q2

REPORT INFORMATION
  Report Type: 
  Country: None (occurrence: None)
  Receive Date: 20060628
  Receipt Date: 20060621
  Transmission Date: 20061013
  Serious: Yes (Hospitalization)
  Sender: FDA-Public Use
  Company Number: MEDI-0004697

PATIENT
  Age: 27 Year
  Sex: Male

DRUGS (1)
  1. ETHYOL [Suspect]

REACTIONS (5)
  - DYSPNOEA [None]
  - HYPOTENSION [None]
  - PHARYNGEAL OEDEMA [None]
  - PYREXIA [None]
  - RASH [None]
